FAERS Safety Report 5688570-7 (Version None)
Quarter: 2008Q1

REPORT INFORMATION
  Report Type: 
  Country: None (occurrence: None)
  Receive Date: 20080331
  Receipt Date: 20080327
  Transmission Date: 20080703
  Serious: Yes (Hospitalization)
  Sender: FDA-Public Use
  Company Number: IE-BRISTOL-MYERS SQUIBB COMPANY-14106611

PATIENT
  Age: 56 Year
  Sex: Female
  Weight: 56 kg

DRUGS (16)
  1. CISPLATIN [Suspect]
     Indication: NON-SMALL CELL LUNG CANCER
     Dosage: DAY 1 OF A 21 DAY CYCLE.
     Route: 042
     Dates: start: 20080219, end: 20080219
  2. GEMCITABINE [Suspect]
     Indication: NON-SMALL CELL LUNG CANCER
     Dosage: DAY 1 AND 8 OF THE 21 DAY.
     Route: 042
     Dates: start: 20080219, end: 20080219
  3. CP-751,871 [Suspect]
     Indication: NON-SMALL CELL LUNG CANCER
     Dosage: DAY 1 OF A 21 DAY CYCLE.
     Route: 042
     Dates: start: 20080219, end: 20080219
  4. MEGACE [Concomitant]
     Route: 048
     Dates: start: 20080204
  5. FOSAMAX [Concomitant]
     Route: 058
     Dates: start: 20050101
  6. CALCICHEW D3 [Concomitant]
     Route: 048
     Dates: start: 20050201
  7. IBUPROFEN [Concomitant]
     Route: 048
     Dates: start: 20080204, end: 20080218
  8. CODEINE LINCTUS [Concomitant]
     Route: 048
     Dates: start: 20080217
  9. NEXIUM [Concomitant]
     Route: 048
     Dates: start: 20080217
  10. DEXAMETHASONE TAB [Concomitant]
     Route: 042
     Dates: start: 20080219
  11. CORSODYL [Concomitant]
     Route: 048
     Dates: start: 20080219
  12. MYCOSTATIN [Concomitant]
     Route: 048
     Dates: start: 20080219
  13. MOVICOL [Concomitant]
     Route: 048
     Dates: start: 20080219
  14. SENNA [Concomitant]
     Route: 048
     Dates: start: 20080219
  15. EMEND [Concomitant]
     Route: 048
     Dates: start: 20080219
  16. ZOFRAN [Concomitant]
     Route: 042
     Dates: start: 20080219, end: 20080219

REACTIONS (1)
  - HYPERGLYCAEMIA [None]
